FAERS Safety Report 5768031-7 (Version None)
Quarter: 2008Q2

REPORT INFORMATION
  Report Type: 
  Country: None (occurrence: None)
  Receive Date: 20080601
  Receipt Date: 20080311
  Transmission Date: 20081010
  Serious: No
  Sender: FDA-Public Use
  Company Number: US200803002570

PATIENT
  Age: 70 Year
  Sex: Female
  Weight: 74.8 kg

DRUGS (6)
  1. BYETTA [Suspect]
     Indication: TYPE 2 DIABETES MELLITUS
     Dosage: 5 UG, 2/D, SUBCUTANEOUS
     Route: 058
     Dates: start: 20080303
  2. EXENATIDE 5MCG PEN, DISPOSABLE DEVICE (EXENATIDE PEN (5MCG)) PEN,DISPO [Concomitant]
  3. ACTOS/USA/ (PIOGLITAZONE HYDROCHLORIDE) [Concomitant]
  4. GLUCOPHAGE/USA/ (METFORMIN HYDROCHLORIDE) [Concomitant]
  5. TRICOR [Concomitant]
  6. SYNTHROID [Concomitant]

REACTIONS (5)
  - DECREASED APPETITE [None]
  - FATIGUE [None]
  - LETHARGY [None]
  - NAUSEA [None]
  - VOMITING [None]
